FAERS Safety Report 9894587 (Version 1)
Quarter: 2014Q1

REPORT INFORMATION
  Report Type: Spontaneous
  Country: IT (occurrence: IT)
  Receive Date: 20140213
  Receipt Date: 20140213
  Transmission Date: 20141002
  Serious: Yes (Hospitalization)
  Sender: FDA-Public Use
  Company Number: PHHY2014IT017174

PATIENT
  Age: 87 Year
  Sex: Male

DRUGS (7)
  1. ACETYLSALICYLIC ACID [Suspect]
     Indication: CARDIAC PACEMAKER INSERTION
     Dosage: 100 MG, QD
     Route: 048
     Dates: start: 20120101, end: 20140131
  2. PLAVIX [Suspect]
     Indication: CARDIAC PACEMAKER INSERTION
     Dosage: 1 DF, QD
     Route: 048
     Dates: start: 20120101, end: 20140131
  3. NORVASC [Concomitant]
  4. LASIX [Concomitant]
  5. KAYEXALATE [Concomitant]
  6. BISOPROLOL [Concomitant]
  7. CALCITRIOL [Concomitant]

REACTIONS (1)
  - Subdural haematoma [Recovering/Resolving]
